FAERS Safety Report 9294877 (Version 1)
Quarter: 2013Q2

REPORT INFORMATION
  Report Type: Spontaneous
  Country: US (occurrence: None)
  Receive Date: 20130514
  Receipt Date: 20130514
  Transmission Date: 20140414
  Serious: Yes (Other)
  Sender: FDA-Public Use
  Company Number: US-1198130

PATIENT
  Age: 75 Year
  Sex: Male

DRUGS (5)
  1. TRAVATAN Z [Suspect]
     Indication: GLAUCOMA
     Route: 047
     Dates: start: 2013
  2. AZOPT [Suspect]
     Indication: GLAUCOMA
     Route: 047
  3. SIMVASTATIN [Concomitant]
  4. METOPROLOL [Concomitant]
  5. LISINOPRIL [Concomitant]

REACTIONS (3)
  - Hallucination [None]
  - Chest pain [None]
  - Headache [None]
